FAERS Safety Report 8581943-4 (Version None)
Quarter: 2012Q3

REPORT INFORMATION
  Report Type: 
  Country: None (occurrence: None)
  Receive Date: 20120809
  Receipt Date: 20120807
  Transmission Date: 20120928
  Serious: Yes (Disabling)
  Sender: FDA-Public Use
  Company Number: US-PERRIGO-12US006546

PATIENT
  Age: 58 Year
  Sex: Male

DRUGS (1)
  1. IBUPROFEN [Suspect]
     Indication: TENDONITIS
     Dosage: UNK, UNK
     Route: 048
     Dates: start: 20120710

REACTIONS (5)
  - INCORRECT DOSE ADMINISTERED [None]
  - HALLUCINATION, AUDITORY [None]
  - INCORRECT DRUG ADMINISTRATION DURATION [None]
  - HALLUCINATION, TACTILE [None]
  - HALLUCINATION, VISUAL [None]
